FAERS Safety Report 6866272-9 (Version None)
Quarter: 2010Q2

REPORT INFORMATION
  Report Type: 
  Country: None (occurrence: None)
  Receive Date: 20100601
  Receipt Date: 20100311
  Transmission Date: 20101027
  Serious: Yes (Hospitalization)
  Sender: FDA-Public Use
  Company Number: US201003003145

PATIENT
  Sex: Female

DRUGS (1)
  1. BYETTA [Suspect]
     Dosage: 5 UG
     Dates: start: 20091211, end: 20100101

REACTIONS (3)
  - HYPOGLYCAEMIA [None]
  - NAUSEA [None]
  - TREMOR [None]
